FAERS Safety Report 9792950 (Version 1)
Quarter: 2014Q1

REPORT INFORMATION
  Report Type: Spontaneous
  Country: AU (occurrence: AU)
  Receive Date: 20140102
  Receipt Date: 20140102
  Transmission Date: 20141002
  Serious: Yes (Hospitalization)
  Sender: FDA-Public Use
  Company Number: AU-ASTRAZENECA-2013SE93204

PATIENT
  Age: 32 Year
  Sex: Male

DRUGS (6)
  1. PROPOFOL [Suspect]
     Route: 042
     Dates: start: 20130924
  2. FENTANYL [Suspect]
     Route: 065
     Dates: start: 20130924
  3. CEPHAZOLIN SODIUM [Suspect]
     Route: 065
     Dates: start: 20130924
  4. DEXAMETHASONE [Suspect]
     Route: 065
     Dates: start: 20130924
  5. MIDAZOLAM [Suspect]
     Route: 065
     Dates: start: 20130924
  6. ROCURONIUM BROMIDE [Suspect]
     Route: 065
     Dates: start: 20130924

REACTIONS (5)
  - Chest discomfort [Recovered/Resolved]
  - Heart rate increased [Recovered/Resolved]
  - Oxygen saturation decreased [Recovered/Resolved]
  - Erythema [Recovered/Resolved]
  - Bronchospasm [Recovered/Resolved]
